FAERS Safety Report 9822510 (Version 2)
Quarter: 2014Q1

REPORT INFORMATION
  Report Type: Report from Study
  Country: CA (occurrence: CA)
  Receive Date: 20140116
  Receipt Date: 20140116
  Transmission Date: 20141002
  Serious: Yes (Other)
  Sender: FDA-Public Use
  Company Number: CA-BRISTOL-MYERS SQUIBB COMPANY-19729086

PATIENT
  Age: 58 Year
  Sex: Female

DRUGS (14)
  1. ORENCIA [Suspect]
     Indication: RHEUMATOID ARTHRITIS
     Dosage: 1 DF: 750 UNIT NOS
     Dates: start: 20130105
  2. PREDNISONE [Concomitant]
  3. WARFARIN [Concomitant]
  4. FOSAMAX [Concomitant]
  5. METHOTREXATE [Concomitant]
  6. CODEINE [Concomitant]
  7. SLOW-K [Concomitant]
  8. FOLIC ACID [Concomitant]
  9. CELEBREX [Concomitant]
  10. VITAMIN B12 [Concomitant]
  11. MULTIVITAMINS [Concomitant]
  12. CITALOPRAM [Concomitant]
  13. PREVACID [Concomitant]
  14. CODEINE CONTIN [Concomitant]

REACTIONS (3)
  - Arthrodesis [Unknown]
  - Localised infection [Unknown]
  - Drug ineffective [Unknown]
